FAERS Safety Report 7363243-3 (Version None)
Quarter: 2011Q1

REPORT INFORMATION
  Report Type: 
  Country: None (occurrence: None)
  Receive Date: 20110321
  Receipt Date: 20110221
  Transmission Date: 20110831
  Serious: No
  Sender: FDA-Public Use
  Company Number: US-B.I. PHARMACEUTICALS,INC./RIDGEFIELD-2011-BP-00729BP

PATIENT
  Age: 82 Year
  Sex: Female
  Weight: 44.08 kg

DRUGS (7)
  1. PRADAXA [Suspect]
     Indication: ATRIAL FIBRILLATION
     Dosage: 300 MG
     Route: 048
     Dates: start: 20101215, end: 20101221
  2. LASIX [Concomitant]
     Route: 048
     Dates: start: 20100901
  3. FOSAMAX [Concomitant]
     Route: 048
     Dates: start: 20071201
  4. NIASPAN [Concomitant]
     Route: 048
     Dates: start: 20071201
  5. COUMADIN [Concomitant]
     Route: 048
     Dates: start: 20101224
  6. ASPIRIN [Concomitant]
     Dosage: 81 MG
     Route: 048
     Dates: start: 20081201
  7. DIOVAN [Concomitant]
     Dosage: 180 MG
     Route: 048
     Dates: start: 20071201

REACTIONS (6)
  - INTERNATIONAL NORMALISED RATIO INCREASED [None]
  - ABDOMINAL PAIN [None]
  - VOMITING [None]
  - DIARRHOEA [None]
  - SOMNOLENCE [None]
  - PAIN IN EXTREMITY [None]
